FAERS Safety Report 8530212-7 (Version None)
Quarter: 2012Q3

REPORT INFORMATION
  Report Type: 
  Country: None (occurrence: None)
  Receive Date: 20120723
  Receipt Date: 20120717
  Transmission Date: 20120928
  Serious: Yes (Life-Threatening, Other)
  Sender: FDA-Public Use
  Company Number: GB-VERTEX PHARMACEUTICALS INC.-000000000000000930

PATIENT
  Sex: Male

DRUGS (8)
  1. ZOPICLONE [Concomitant]
  2. METHADONE HCL [Concomitant]
     Indication: DRUG DEPENDENCE
  3. TELAPREVIR [Suspect]
     Indication: HEPATITIS C
     Dosage: DOSAGE FORM: TABLET
     Route: 048
     Dates: start: 20120530
  4. PROPRANOLOL [Concomitant]
  5. VITAMIN [Concomitant]
  6. DOTHIEPIN HYDROCHLORIDE [Concomitant]
  7. DIAZEPAM [Concomitant]
  8. PEGINTERFERON ALFA-2A [Concomitant]
     Indication: HEPATITIS C
     Dosage: DOSAGE FORM: INJECTION
     Route: 058
     Dates: start: 20120605

REACTIONS (8)
  - FATIGUE [None]
  - DIARRHOEA [None]
  - DYSPNOEA [None]
  - NAUSEA [None]
  - URINARY INCONTINENCE [None]
  - CONTUSION [None]
  - ANAEMIA [None]
  - RASH [None]
